FAERS Safety Report 15361153 (Version 1)
Quarter: 2018Q3

REPORT INFORMATION
  Report Type: Spontaneous
  Country: US (occurrence: US)
  Receive Date: 20180831
  Receipt Date: 20180831
  Transmission Date: 20181010
  Serious: No
  Sender: FDA-Public Use
  Company Number: None

PATIENT
  Age: 63 Year
  Sex: Male
  Weight: 81.65 kg

DRUGS (1)
  1. TALTZ [Suspect]
     Active Substance: IXEKIZUMAB
     Indication: PSORIASIS
     Dosage: 80MG (1PEN) SUBCUTANEOUSLY EVERY 2 WEEKS AT WEEKS 2?4 AS DIRECTED
     Route: 058
     Dates: start: 201808

REACTIONS (1)
  - Pruritus [None]
